FAERS Safety Report 24084117 (Version 1)
Quarter: 2024Q3

REPORT INFORMATION
  Report Type: Report from Study
  Country: US (occurrence: US)
  Receive Date: 20240712
  Receipt Date: 20240712
  Transmission Date: 20241017
  Serious: Yes (Other)
  Sender: VKT PHARMA PRIVATE LIMITED
  Company Number: US-VKT-000565

PATIENT
  Age: 9 Year
  Sex: Female

DRUGS (1)
  1. LEVETIRACETAM [Suspect]
     Active Substance: LEVETIRACETAM
     Indication: Epilepsy
     Route: 065

REACTIONS (6)
  - Change in seizure presentation [Unknown]
  - Partial seizures [Unknown]
  - Seizure [Unknown]
  - Therapy partial responder [Unknown]
  - Hyperhidrosis [Unknown]
  - Sleep disorder [Recovered/Resolved]
